FAERS Safety Report 6561618-3 (Version None)
Quarter: 2010Q1

REPORT INFORMATION
  Report Type: 
  Country: None (occurrence: None)
  Receive Date: 20100130
  Receipt Date: 20091019
  Transmission Date: 20100710
  Serious: No
  Sender: FDA-Public Use
  Company Number: US-ABBOTT-09P-163-0604079-00

PATIENT
  Sex: Female
  Weight: 81.72 kg

DRUGS (3)
  1. HUMIRA [Suspect]
     Indication: CROHN'S DISEASE
     Dates: start: 20081201
  2. BENTYL [Concomitant]
     Indication: MUSCLE SPASMS
     Dosage: UNKNOWN
  3. PROMETHAZINE [Concomitant]
     Indication: NAUSEA
     Dosage: UNKNOWN

REACTIONS (3)
  - ANXIETY [None]
  - HOT FLUSH [None]
  - MUSCLE SPASMS [None]
